FAERS Safety Report 13405507 (Version 9)
Quarter: 2023Q1

REPORT INFORMATION
  Report Type: Spontaneous
  Country: US (occurrence: US)
  Receive Date: 20170405
  Receipt Date: 20230314
  Transmission Date: 20230417
  Serious: Yes (Other)
  Sender: FDA-Public Use
  Company Number: US-PFIZER INC-2017145224

PATIENT
  Age: 67 Year
  Sex: Female
  Weight: 64.86 kg

DRUGS (3)
  1. IBRANCE [Suspect]
     Active Substance: PALBOCICLIB
     Indication: Breast cancer stage IV
     Dosage: 100 MG,
  2. IBRANCE [Suspect]
     Active Substance: PALBOCICLIB
     Dosage: 75 MG, CYCLIC (ONE TIME A DAY FOR 21 DAYS AND THEN 7 DAYS OFF EVERY 28 DAYS)
     Route: 048
     Dates: start: 2016
  3. LETROZOLE [Concomitant]
     Active Substance: LETROZOLE
     Indication: Breast cancer stage IV
     Dosage: 2.5 MG, 1X/DAY
     Route: 048
     Dates: start: 2016

REACTIONS (9)
  - Cytopenia [Unknown]
  - Headache [Unknown]
  - Feeling abnormal [Unknown]
  - Pain [Unknown]
  - White blood cell count decreased [Unknown]
  - Nasopharyngitis [Recovering/Resolving]
  - Dysgeusia [Unknown]
  - Neoplasm progression [Unknown]
  - Aphonia [Recovering/Resolving]

NARRATIVE: CASE EVENT DATE: 20170908
